FAERS Safety Report 19173606 (Version 3)
Quarter: 2021Q2

REPORT INFORMATION
  Report Type: Spontaneous
  Country: JP (occurrence: JP)
  Receive Date: 20210423
  Receipt Date: 20210524
  Transmission Date: 20210717
  Serious: Yes (Hospitalization, Other)
  Sender: FDA-Public Use
  Company Number: JP-GLAXOSMITHKLINE-JP2021088344

PATIENT
  Age: 80 Year
  Sex: Female

DRUGS (1)
  1. ROPINIROLE HYDROCHLORIDE. [Suspect]
     Active Substance: ROPINIROLE HYDROCHLORIDE
     Indication: PARKINSON^S DISEASE
     Dosage: 8 MG, QD, IN THE MORNING
     Route: 048

REACTIONS (4)
  - Parkinson^s disease [Unknown]
  - Product use issue [Unknown]
  - Gastric fistula [Unknown]
  - Hospitalisation [Unknown]
